FAERS Safety Report 19943558 (Version 1)
Quarter: 2021Q4

REPORT INFORMATION
  Report Type: Spontaneous
  Country: US (occurrence: US)
  Receive Date: 20211009
  Receipt Date: 20211009
  Transmission Date: 20220303
  Serious: Yes (Hospitalization, Disabling)
  Sender: FDA-Public Use
  Company Number: None

PATIENT
  Age: 25 Year
  Sex: Male
  Weight: 67.5 kg

DRUGS (4)
  1. AIMOVIG [Suspect]
     Active Substance: ERENUMAB-AOOE
     Indication: Migraine
     Dosage: QUANTITY:1 INJECTION(S);OTHER FREQUENCY:ONCE A MONTH;
     Route: 058
     Dates: start: 20200301, end: 20200801
  2. CETIRIZINE HYDROCHLORIDE [Concomitant]
     Active Substance: CETIRIZINE HYDROCHLORIDE
  3. SUMATRIPTAN [Concomitant]
     Active Substance: SUMATRIPTAN
  4. AMITRIPTYLINE [Concomitant]
     Active Substance: AMITRIPTYLINE

REACTIONS (7)
  - Palpitations [None]
  - Dizziness [None]
  - Fatigue [None]
  - Autonomic nervous system imbalance [None]
  - Postural orthostatic tachycardia syndrome [None]
  - Bedridden [None]
  - Gastrointestinal disorder [None]

NARRATIVE: CASE EVENT DATE: 20210729
